FAERS Safety Report 8502309-9 (Version None)
Quarter: 2012Q3

REPORT INFORMATION
  Report Type: 
  Country: None (occurrence: None)
  Receive Date: 20120711
  Receipt Date: 20120308
  Transmission Date: 20120928
  Serious: No
  Sender: FDA-Public Use
  Company Number: US-COVIDIEN/TYCO HEALTHCARE/MALLINCKRODT-T201201042

PATIENT
  Sex: Female
  Weight: 54.422 kg

DRUGS (4)
  1. CYMBALTA [Concomitant]
     Indication: DEPRESSION
     Dosage: 60 MG, QD
     Route: 048
     Dates: start: 20111001
  2. OXYCODONE HCL [Suspect]
     Indication: SUBSTANCE USE
     Route: 045
  3. MARIJUANA [Concomitant]
     Indication: SUBSTANCE USE
     Dosage: UNK
  4. COCAINE [Concomitant]
     Indication: SUBSTANCE USE
     Dosage: UNK

REACTIONS (3)
  - TREMOR [None]
  - DYSSTASIA [None]
  - PAIN IN EXTREMITY [None]
